FAERS Safety Report 20258002 (Version 1)
Quarter: 2021Q4

REPORT INFORMATION
  Report Type: Spontaneous
  Country: IN (occurrence: IN)
  Receive Date: 20211230
  Receipt Date: 20211230
  Transmission Date: 20220303
  Serious: Yes (Other)
  Sender: FDA-Public Use
  Company Number: IN-LUPIN PHARMACEUTICALS INC.-2021-25890

PATIENT
  Age: 30 Year
  Sex: Male

DRUGS (6)
  1. DICLOFENAC [Suspect]
     Active Substance: DICLOFENAC
     Indication: Pancreatitis chronic
     Dosage: UNK (MULTIPLE DOSES)
     Route: 065
  2. DICLOFENAC [Suspect]
     Active Substance: DICLOFENAC
     Indication: Abdominal pain
  3. TRAMADOL [Suspect]
     Active Substance: TRAMADOL
     Indication: Pancreatitis chronic
     Dosage: UNK (MULTIPLE DOSES)
     Route: 065
  4. TRAMADOL [Suspect]
     Active Substance: TRAMADOL
     Indication: Abdominal pain
  5. FENTANYL [Suspect]
     Active Substance: FENTANYL
     Indication: Pancreatitis chronic
     Dosage: UNK (MULTIPLE DOSES)
     Route: 065
  6. FENTANYL [Suspect]
     Active Substance: FENTANYL
     Indication: Abdominal pain

REACTIONS (1)
  - Drug ineffective [Unknown]
